FAERS Safety Report 12930307 (Version 3)
Quarter: 2016Q4

REPORT INFORMATION
  Report Type: Spontaneous
  Country: FI (occurrence: FI)
  Receive Date: 20161110
  Receipt Date: 20161125
  Transmission Date: 20170207
  Serious: Yes (Hospitalization)
  Sender: FDA-Public Use
  Company Number: PHHY2016FI149073

PATIENT
  Age: 73 Year
  Sex: Male

DRUGS (34)
  1. FURESIS [Concomitant]
     Active Substance: FUROSEMIDE
     Indication: PRODUCT USED FOR UNKNOWN INDICATION
     Dosage: 10 MG, QD
     Route: 042
  2. PARACETAMOL [Concomitant]
     Active Substance: ACETAMINOPHEN
     Indication: PRODUCT USED FOR UNKNOWN INDICATION
     Dosage: 1 G, PRN
     Route: 042
  3. MADOPAR [Concomitant]
     Active Substance: BENSERAZIDE HYDROCHLORIDE\LEVODOPA
     Indication: PRODUCT USED FOR UNKNOWN INDICATION
     Dosage: 100/25 MG AS NEEDED UNK
     Route: 065
  4. CALCICHEW D3 FORTE [Concomitant]
     Active Substance: CALCIUM\CHOLECALCIFEROL
     Indication: PRODUCT USED FOR UNKNOWN INDICATION
     Dosage: 1 DF, BID
     Route: 065
  5. MAREVAN [Concomitant]
     Active Substance: WARFARIN SODIUM
     Indication: PRODUCT USED FOR UNKNOWN INDICATION
     Dosage: 3 MG, UNK
     Route: 065
     Dates: end: 20160901
  6. KONAKION [Concomitant]
     Active Substance: PHYTONADIONE
     Indication: HAEMORRHAGE
     Dosage: UNK
     Route: 065
  7. COFACT [Concomitant]
     Indication: HAEMORRHAGE
     Dosage: UNK
     Route: 065
  8. PANADOL [Concomitant]
     Active Substance: ACETAMINOPHEN
     Indication: PRODUCT USED FOR UNKNOWN INDICATION
     Dosage: 665 MG, UNK
     Route: 065
  9. CELLCEPT [Concomitant]
     Active Substance: MYCOPHENOLATE MOFETIL\MYCOPHENOLATE MOFETIL HYDROCHLORIDE
     Indication: PRODUCT USED FOR UNKNOWN INDICATION
     Dosage: 1 DF, BID
     Route: 065
  10. KALISOL [Concomitant]
     Indication: PRODUCT USED FOR UNKNOWN INDICATION
     Dosage: 20 ML, BID
     Route: 048
  11. MERONEM [Concomitant]
     Active Substance: MEROPENEM
     Indication: PRODUCT USED FOR UNKNOWN INDICATION
     Dosage: 2 G, TID
     Route: 042
  12. EXELON [Concomitant]
     Active Substance: RIVASTIGMINE TARTRATE
     Indication: PRODUCT USED FOR UNKNOWN INDICATION
     Dosage: 4.6 MG OR 9.5 MG DAILY
     Route: 065
  13. SIFROL [Concomitant]
     Active Substance: PRAMIPEXOLE
     Indication: PRODUCT USED FOR UNKNOWN INDICATION
     Dosage: 1 DF, QD
     Route: 065
     Dates: end: 20160903
  14. AVODART [Concomitant]
     Active Substance: DUTASTERIDE
     Indication: PRODUCT USED FOR UNKNOWN INDICATION
     Dosage: 1 DF, QD
     Route: 065
     Dates: end: 20160903
  15. SINEMET [Concomitant]
     Active Substance: CARBIDOPA\LEVODOPA
     Indication: PRODUCT USED FOR UNKNOWN INDICATION
     Dosage: 1 DF, TID
     Route: 065
  16. PERFALGAN [Concomitant]
     Active Substance: ACETAMINOPHEN
     Indication: PRODUCT USED FOR UNKNOWN INDICATION
     Dosage: 1 G, UNK
     Route: 042
  17. SOMAC [Concomitant]
     Active Substance: PANTOPRAZOLE SODIUM
     Indication: PRODUCT USED FOR UNKNOWN INDICATION
     Dosage: 20 MG, QD
     Route: 065
  18. KERLON [Concomitant]
     Indication: PRODUCT USED FOR UNKNOWN INDICATION
     Dosage: 2.5 MG, QD
     Route: 065
  19. SIMVASTATIN ORION [Concomitant]
     Active Substance: SIMVASTATIN
     Indication: PRODUCT USED FOR UNKNOWN INDICATION
     Dosage: 1 DF, QD
     Route: 065
  20. ATIVAN [Concomitant]
     Active Substance: LORAZEPAM
     Indication: PRODUCT USED FOR UNKNOWN INDICATION
     Dosage: 2 MG, PRN
     Route: 042
  21. SANDIMMUN NEORAL [Suspect]
     Active Substance: CYCLOSPORINE
     Indication: PRODUCT USED FOR UNKNOWN INDICATION
     Dosage: 125 MG, QD
     Route: 065
  22. APYDAN [Suspect]
     Active Substance: OXCARBAZEPINE
     Indication: SEIZURE
     Dosage: 300- 600 MG, BID
     Route: 048
     Dates: start: 20160908, end: 20160922
  23. SINEMET [Concomitant]
     Active Substance: CARBIDOPA\LEVODOPA
     Dosage: 1.5 DF, QD
     Route: 065
  24. KLEXANE [Concomitant]
     Active Substance: ENOXAPARIN
     Indication: PRODUCT USED FOR UNKNOWN INDICATION
     Dosage: 20 MG, BID
     Route: 058
  25. FINASTERIDE. [Concomitant]
     Active Substance: FINASTERIDE
     Indication: BENIGN PROSTATIC HYPERPLASIA
     Dosage: UNK
     Route: 065
  26. CALOGEN [Concomitant]
     Indication: PRODUCT USED FOR UNKNOWN INDICATION
     Dosage: 15 ML, TID
     Route: 065
  27. OFTAGEL [Concomitant]
     Active Substance: CARBOMER
     Indication: PRODUCT USED FOR UNKNOWN INDICATION
     Dosage: 1 DF, BID
     Route: 065
  28. SANDIMMUN NEORAL [Suspect]
     Active Substance: CYCLOSPORINE
     Dosage: 75 MG, BID
     Route: 065
  29. APYDAN [Suspect]
     Active Substance: OXCARBAZEPINE
     Indication: EPILEPSY
     Dosage: 300 MG, QD
     Route: 048
     Dates: start: 20160901
  30. APYDAN [Suspect]
     Active Substance: OXCARBAZEPINE
     Dosage: 820 MG
     Route: 065
  31. AMLORATIO [Concomitant]
     Active Substance: AMLODIPINE BESYLATE
     Indication: PRODUCT USED FOR UNKNOWN INDICATION
     Dosage: 1 DF, QD
     Route: 065
  32. SIMVASTATIN. [Concomitant]
     Active Substance: SIMVASTATIN
     Indication: PRODUCT USED FOR UNKNOWN INDICATION
     Dosage: 20 MG, QD
     Route: 065
  33. CELLCEPT [Concomitant]
     Active Substance: MYCOPHENOLATE MOFETIL\MYCOPHENOLATE MOFETIL HYDROCHLORIDE
     Dosage: 0.5 DF,BID
     Route: 065
  34. LEVOLAC [Concomitant]
     Active Substance: LACTULOSE
     Indication: PRODUCT USED FOR UNKNOWN INDICATION
     Dosage: 20 ML, BID
     Route: 048

REACTIONS (54)
  - Cerebral haemorrhage [Not Recovered/Not Resolved]
  - Haematoma [Unknown]
  - Pneumonia aspiration [Unknown]
  - Dysarthria [Unknown]
  - Basal cell carcinoma [Unknown]
  - Infection [Recovering/Resolving]
  - Epilepsy [Not Recovered/Not Resolved]
  - Myoclonus [Not Recovered/Not Resolved]
  - Snoring [Unknown]
  - Actinic keratosis [Unknown]
  - Tremor [Not Recovered/Not Resolved]
  - Enterococcal infection [Unknown]
  - Hypertension [Not Recovered/Not Resolved]
  - Depressed level of consciousness [Recovering/Resolving]
  - Muscle rigidity [Unknown]
  - Unresponsive to stimuli [Unknown]
  - Anticonvulsant drug level increased [Unknown]
  - Tubulointerstitial nephritis [Unknown]
  - C-reactive protein increased [Recovering/Resolving]
  - Cardiac disorder [Unknown]
  - Acute kidney injury [Recovering/Resolving]
  - Chronic kidney disease [Unknown]
  - Pyelonephritis [Unknown]
  - Pyrexia [Unknown]
  - Headache [Unknown]
  - Miosis [Unknown]
  - Hypokalaemia [Unknown]
  - Rales [Unknown]
  - Congenital cystic kidney disease [Unknown]
  - Musculoskeletal stiffness [Unknown]
  - Hallucination [Unknown]
  - Atrial fibrillation [Unknown]
  - Loss of consciousness [Recovered/Resolved]
  - Fall [Unknown]
  - Bowen^s disease [Unknown]
  - Hypertonia [Unknown]
  - Heart disease congenital [Unknown]
  - Immunosuppressant drug level decreased [Unknown]
  - Renal cancer [Unknown]
  - Poisoning [Unknown]
  - Apnoea [Unknown]
  - Palatal swelling [Unknown]
  - Gait deviation [Unknown]
  - Tongue dry [Unknown]
  - Anticonvulsant drug level decreased [Unknown]
  - Fatigue [Unknown]
  - Muscle twitching [Recovered/Resolved]
  - Dysstasia [Unknown]
  - Pneumonia bacterial [Unknown]
  - Parkinson^s disease [Unknown]
  - Gaze palsy [Unknown]
  - Balance disorder [Unknown]
  - Pseudomonas infection [Unknown]
  - Vomiting [Unknown]

NARRATIVE: CASE EVENT DATE: 201312
